FAERS Safety Report 6274334-2 (Version None)
Quarter: 2009Q3

REPORT INFORMATION
  Report Type: 
  Country: None (occurrence: None)
  Receive Date: 20090720
  Receipt Date: 20090706
  Transmission Date: 20100115
  Serious: Yes (Hospitalization)
  Sender: FDA-Public Use
  Company Number: DE-GENENTECH-285208

PATIENT
  Sex: Female

DRUGS (13)
  1. RITUXIMAB [Suspect]
     Indication: MALIGNANT LYMPHOID NEOPLASM
     Dosage: 700 MG/M2, UNK
     Route: 065
     Dates: end: 20090518
  2. PROCARBAZINE [Suspect]
     Indication: MALIGNANT LYMPHOID NEOPLASM
     Dosage: 200 MG, UNK
     Route: 065
     Dates: start: 20090114, end: 20090524
  3. ADRIAMYCIN RDF [Suspect]
     Indication: MALIGNANT LYMPHOID NEOPLASM
     Dosage: 66 MG, UNK
     Route: 065
     Dates: start: 20090114, end: 20090518
  4. BLEOMYCIN [Suspect]
     Indication: MALIGNANT LYMPHOID NEOPLASM
     Dosage: 19 MG, UNK
     Route: 065
     Dates: start: 20090121, end: 20090525
  5. VINCRISTINE [Suspect]
     Indication: MALIGNANT LYMPHOID NEOPLASM
     Dosage: 2 MG, UNK
     Route: 065
     Dates: start: 20090121, end: 20090525
  6. ETOPOSIDE [Suspect]
     Indication: MALIGNANT LYMPHOID NEOPLASM
     Dosage: 380 MG, UNK
     Route: 065
     Dates: start: 20090114, end: 20090520
  7. CYCLOPHOSPHAMIDE [Suspect]
     Indication: MALIGNANT LYMPHOID NEOPLASM
     Dosage: 2375 MG, UNK
     Route: 065
     Dates: start: 20090114, end: 20090518
  8. PREDNISONE TAB [Suspect]
     Indication: MALIGNANT LYMPHOID NEOPLASM
     Dosage: 40 MG/M2, UNK
     Route: 065
     Dates: end: 20090531
  9. PARACETAMOL [Concomitant]
     Indication: DRUG USE FOR UNKNOWN INDICATION
     Dosage: UNK
     Dates: start: 20090518, end: 20090518
  10. KEVATRIL [Concomitant]
     Indication: DRUG USE FOR UNKNOWN INDICATION
     Dosage: UNK
     Dates: start: 20090518, end: 20090518
  11. FENISTIL [Concomitant]
     Indication: DRUG USE FOR UNKNOWN INDICATION
     Dosage: UNK
     Dates: start: 20090518, end: 20090518
  12. MESALAMIN [Concomitant]
     Indication: DRUG USE FOR UNKNOWN INDICATION
     Dosage: UNK
     Dates: start: 20090518, end: 20090518
  13. NEULASTA [Concomitant]
     Indication: DRUG USE FOR UNKNOWN INDICATION

REACTIONS (1)
  - PNEUMOCYSTIS JIROVECI PNEUMONIA [None]
